FAERS Safety Report 22969643 (Version 3)
Quarter: 2024Q3

REPORT INFORMATION
  Report Type: Spontaneous
  Country: US (occurrence: US)
  Receive Date: 20230922
  Receipt Date: 20240719
  Transmission Date: 20241016
  Serious: Yes (Other)
  Sender: TEVA
  Company Number: US-TEVA-2023-US-2928278

PATIENT
  Sex: Male
  Weight: 113 kg

DRUGS (14)
  1. LOSARTAN [Suspect]
     Active Substance: LOSARTAN
     Indication: Hypertension
     Route: 048
     Dates: start: 20160821, end: 20161015
  2. LOSARTAN [Suspect]
     Active Substance: LOSARTAN
     Indication: Hypertension
     Route: 048
     Dates: start: 2010
  3. VALSARTAN [Suspect]
     Active Substance: VALSARTAN
     Indication: Hypertension
     Dosage: VALSARTAN SOLCO
     Route: 048
     Dates: start: 20180212, end: 20180806
  4. LEVOTHYROXINE [Concomitant]
     Active Substance: LEVOTHYROXINE\LEVOTHYROXINE SODIUM
     Indication: Hypothyroidism
     Dosage: EVENING
     Route: 048
     Dates: start: 2015
  5. LEVOTHYROXINE [Concomitant]
     Active Substance: LEVOTHYROXINE\LEVOTHYROXINE SODIUM
     Indication: Hypothyroidism
     Dosage: EVENING
     Route: 048
     Dates: start: 2018
  6. LEVOTHYROXINE [Concomitant]
     Active Substance: LEVOTHYROXINE\LEVOTHYROXINE SODIUM
     Indication: Hypothyroidism
     Dosage: EVENING
     Route: 048
     Dates: start: 2005
  7. ATORVASTATIN [Concomitant]
     Active Substance: ATORVASTATIN
     Indication: Hyperlipidaemia
     Dosage: EVENING
     Route: 048
     Dates: start: 2017
  8. ATORVASTATIN [Concomitant]
     Active Substance: ATORVASTATIN
     Indication: Hyperlipidaemia
     Dosage: EVENING
     Route: 048
     Dates: start: 2005
  9. IRBESARTAN [Suspect]
     Active Substance: IRBESARTAN
     Indication: Hypertension
     Dosage: AT BEDTIME (IRBESARTAN CADISTA)
     Route: 048
     Dates: start: 2018
  10. IRBESARTAN [Suspect]
     Active Substance: IRBESARTAN
     Indication: Hypertension
     Dosage: AT BEDTIME (IRBESARTAN LUPIN)
     Route: 048
     Dates: start: 2019
  11. LOSARTAN [Suspect]
     Active Substance: LOSARTAN
     Indication: Hypertension
     Dosage: LOSARTAN AUROBINDO
     Route: 048
     Dates: start: 2016
  12. LOSARTAN [Suspect]
     Active Substance: LOSARTAN
     Indication: Hypertension
     Dosage: LOSARTAN LUPIN
     Route: 048
     Dates: start: 2017
  13. LOSARTAN [Suspect]
     Active Substance: LOSARTAN
     Indication: Hypertension
     Dosage: LOSARTAN VIRTUS
     Route: 048
     Dates: start: 2015
  14. TYLENOL [Concomitant]
     Active Substance: ACETAMINOPHEN
     Indication: Pain
     Dosage: TIME INTERVAL: AS NECESSARY
     Route: 065
     Dates: start: 2017

REACTIONS (3)
  - Prostate cancer [Recovered/Resolved]
  - Urinary incontinence [Unknown]
  - Erectile dysfunction [Recovering/Resolving]
